FAERS Safety Report 6585841-7 (Version None)
Quarter: 2010Q1

REPORT INFORMATION
  Report Type: 
  Country: None (occurrence: None)
  Receive Date: 20100217
  Receipt Date: 20100204
  Transmission Date: 20100710
  Serious: Yes (Other)
  Sender: FDA-Public Use
  Company Number: PHHY2010FR06292

PATIENT

DRUGS (1)
  1. AFINITOR [Suspect]
     Indication: RENAL CANCER

REACTIONS (3)
  - COUGH [None]
  - INTERSTITIAL LUNG DISEASE [None]
  - LUNG DISORDER [None]
